FAERS Safety Report 6230672-0 (Version None)
Quarter: 2009Q2

REPORT INFORMATION
  Report Type: 
  Country: None (occurrence: None)
  Receive Date: 20090611
  Receipt Date: 20090606
  Transmission Date: 20091009
  Serious: Yes (Death, Hospitalization)
  Sender: FDA-Public Use
  Company Number: 2009SP011901

PATIENT
  Age: 39 Year
  Sex: Male

DRUGS (9)
  1. NOXAFIL [Suspect]
     Indication: FUSARIUM INFECTION
     Dosage: 200 MG;TID;
     Dates: start: 20080801
  2. VORICONAZOLE (VORICONAZOLE) [Suspect]
     Indication: FUSARIUM INFECTION
     Dates: start: 20080801
  3. AMPHOTERICIN B [Suspect]
     Indication: FUSARIUM INFECTION
     Dates: start: 20080801
  4. DACLIZUMAB (CON.) [Concomitant]
  5. CICLOSPORINE (CON.) [Concomitant]
  6. CORTICOSTEROIDS (CON.) [Concomitant]
  7. SULFASALAZINE (CON.) [Concomitant]
  8. VANCOMYCINE (CON.) [Concomitant]
  9. MEROPENEM (CON.) [Concomitant]

REACTIONS (18)
  - ACUTE GRAFT VERSUS HOST DISEASE IN INTESTINE [None]
  - ACUTE GRAFT VERSUS HOST DISEASE IN SKIN [None]
  - ARTHROPATHY [None]
  - COLITIS [None]
  - CYTOMEGALOVIRUS INFECTION [None]
  - DRUG INTOLERANCE [None]
  - DRUG RESISTANCE [None]
  - GASTROINTESTINAL HAEMORRHAGE [None]
  - ILEITIS [None]
  - INTESTINAL ULCER [None]
  - MUSCLE DISORDER [None]
  - NAUSEA [None]
  - NEUTROPENIA [None]
  - PRURITUS [None]
  - PSEUDOMONAS INFECTION [None]
  - RASH [None]
  - SEPSIS [None]
  - VOMITING [None]
